FAERS Safety Report 7516879-0 (Version None)
Quarter: 2011Q2

REPORT INFORMATION
  Report Type: 
  Country: None (occurrence: None)
  Receive Date: 20110601
  Receipt Date: 20110526
  Transmission Date: 20111010
  Serious: Yes (Other)
  Sender: FDA-Public Use
  Company Number: JP-B.I. PHARMACEUTICALS,INC./RIDGEFIELD-2011-BP-13998NB

PATIENT
  Sex: Female

DRUGS (3)
  1. RASILEZ [Suspect]
     Route: 048
  2. TELMISARTAN AND HYDROCHLOROTHIAZIDE [Suspect]
     Route: 048
  3. ENALAPRIL MALEATE [Suspect]
     Route: 048

REACTIONS (1)
  - INTERSTITIAL LUNG DISEASE [None]
